FAERS Safety Report 11835138 (Version 2)
Quarter: 2016Q1

REPORT INFORMATION
  Report Type: Spontaneous
  Country: JP (occurrence: JP)
  Receive Date: 20151215
  Receipt Date: 20160219
  Transmission Date: 20160525
  Serious: Yes (Life-Threatening, Hospitalization)
  Sender: FDA-Public Use
  Company Number: JP-VIFOR (INTERNATIONAL) INC.-VIT-2015-03409

PATIENT
  Age: 66 Year
  Sex: Female
  Weight: 39 kg

DRUGS (16)
  1. PURSENNID [Concomitant]
     Active Substance: SENNOSIDES A AND B
     Route: 048
  2. PROGRAF [Concomitant]
     Active Substance: TACROLIMUS\TACROLIMUS ANHYDROUS
     Route: 048
  3. ADALAT [Concomitant]
     Active Substance: NIFEDIPINE
     Route: 048
  4. EPADEL-S [Concomitant]
     Active Substance: ICOSAPENT ETHYL
     Route: 065
  5. MEDROL [Concomitant]
     Active Substance: METHYLPREDNISOLONE
     Route: 048
  6. LASIX [Concomitant]
     Active Substance: FUROSEMIDE
     Route: 048
  7. TERNELIN [Concomitant]
     Active Substance: TIZANIDINE
     Route: 048
  8. MIRCERA [Suspect]
     Active Substance: METHOXY POLYETHYLENE GLYCOL-EPOETIN BETA
     Indication: NEPHROGENIC ANAEMIA
     Route: 058
     Dates: end: 201509
  9. DRENISON [Concomitant]
     Active Substance: FLURANDRENOLIDE
     Route: 062
  10. CELLCEPT [Suspect]
     Active Substance: MYCOPHENOLATE MOFETIL\MYCOPHENOLATE MOFETIL HYDROCHLORIDE
     Indication: IMMUNOSUPPRESSION
     Route: 048
     Dates: end: 20151204
  11. BLOPRESS [Suspect]
     Active Substance: CANDESARTAN CILEXETIL
     Indication: HYPERTENSION
     Route: 048
  12. CARDENALIN [Concomitant]
     Active Substance: DOXAZOSIN MESYLATE
     Route: 048
  13. ATELEC [Concomitant]
     Active Substance: CILNIDIPINE
     Route: 048
  14. NEXIUM [Concomitant]
     Active Substance: ESOMEPRAZOLE MAGNESIUM
     Route: 048
  15. BAYASPIRIN [Concomitant]
     Active Substance: ASPIRIN
     Route: 048
  16. DEPAS [Concomitant]
     Active Substance: ETIZOLAM
     Route: 048

REACTIONS (10)
  - Duodenal ulcer [Unknown]
  - Dizziness [Unknown]
  - Aplasia pure red cell [Unknown]
  - Angina unstable [Unknown]
  - Dyspnoea [Unknown]
  - Zinc deficiency [Unknown]
  - Anaemia [Recovering/Resolving]
  - Adverse event [Unknown]
  - Mallory-Weiss syndrome [Unknown]
  - Bone marrow failure [Unknown]

NARRATIVE: CASE EVENT DATE: 20150831
